FAERS Safety Report 6957898 (Version 3)
Quarter: 2014Q3

REPORT INFORMATION
  Report Type: Spontaneous
  Country: US (occurrence: None)
  Receive Date: 20090324
  Receipt Date: 20140912
  Transmission Date: 20150326
  Serious: Yes (Other)
  Sender: FDA-Public Use
  Company Number: 2009S1004116

PATIENT
  Age: 75 Year
  Sex: Male

DRUGS (9)
  1. PRILOSEC (OMEPRAZOLE) [Concomitant]
     Active Substance: OMEPRAZOLE MAGNESIUM
  2. TRICOR [Concomitant]
     Active Substance: FENOFIBRATE
  3. GLUCOTROL [Concomitant]
     Active Substance: GLIPIZIDE
  4. PHOSPHO-SODA [Suspect]
     Active Substance: SODIUM PHOSPHATE, DIBASIC\SODIUM PHOSPHATE, MONOBASIC
     Indication: COLONOSCOPY
     Dosage: PO
     Route: 048
     Dates: start: 20050629
  5. FERROUS SULFATE [Concomitant]
     Active Substance: FERROUS SULFATE\FERROUS SULFATE, DRIED
  6. ALLOPURINOL (ALLOPURINOL) [Concomitant]
     Active Substance: ALLOPURINOL
  7. HYDROCHLOROTHIAZIDE (HYDROCHLOROTHIAZIDE) [Concomitant]
     Active Substance: HYDROCHLOROTHIAZIDE
  8. LISINOPRIL (LISINOPRIL) [Concomitant]
     Active Substance: LISINOPRIL
  9. ADVAIR (FLUTICASONE PROPIONATE, SALMETEROL, XINAFOATE) [Concomitant]

REACTIONS (13)
  - Proteinuria [None]
  - Diverticulum [None]
  - Renal failure [None]
  - Autoimmune disorder [None]
  - Glomerulonephritis membranous [None]
  - Gastrointestinal haemorrhage [None]
  - Malaise [None]
  - Polyp [None]
  - Hyperparathyroidism secondary [None]
  - Renal cyst [None]
  - Diarrhoea [None]
  - Renal failure chronic [None]
  - Cholelithiasis [None]

NARRATIVE: CASE EVENT DATE: 2005
